FAERS Safety Report 10379288 (Version 1)
Quarter: 2014Q3

REPORT INFORMATION
  Report Type: Spontaneous
  Country: US (occurrence: US)
  Receive Date: 20140812
  Receipt Date: 20140812
  Transmission Date: 20150326
  Serious: No
  Sender: FDA-Public Use
  Company Number: US-BRISTOL-MYERS SQUIBB COMPANY-20679163

PATIENT
  Sex: Male

DRUGS (3)
  1. TRUVADA [Concomitant]
     Active Substance: EMTRICITABINE\TENOFOVIR DISOPROXIL FUMARATE
  2. REYATAZ [Suspect]
     Active Substance: ATAZANAVIR SULFATE
  3. NORVIR [Concomitant]
     Active Substance: RITONAVIR

REACTIONS (2)
  - Dysphagia [Unknown]
  - General physical health deterioration [Unknown]
